FAERS Safety Report 4344324-5 (Version None)
Quarter: 2004Q2

REPORT INFORMATION
  Report Type: 
  Country: None (occurrence: None)
  Receive Date: 20040419
  Receipt Date: 20040407
  Transmission Date: 20050107
  Serious: Yes (Hospitalization, Other)
  Sender: FDA-Public Use
  Company Number: DEWYE659124MAR04

PATIENT
  Age: 63 Year
  Sex: Male

DRUGS (2)
  1. RAPAMUNE [Suspect]
     Indication: PANCREATIC CARCINOMA
     Route: 048
  2. GEMCITABINE (GEMCITABINE) [Concomitant]

REACTIONS (1)
  - EPILEPSY [None]
